FAERS Safety Report 25163285 (Version 3)
Quarter: 2025Q2

REPORT INFORMATION
  Report Type: Spontaneous
  Country: GB (occurrence: GB)
  Receive Date: 20250404
  Receipt Date: 20250520
  Transmission Date: 20250716
  Serious: No
  Sender: PFIZER
  Company Number: GB-PFIZER INC-202500061636

PATIENT
  Age: 16 Year
  Sex: Male

DRUGS (1)
  1. GENOTROPIN [Suspect]
     Active Substance: SOMATROPIN

REACTIONS (3)
  - Device issue [Unknown]
  - Device leakage [Unknown]
  - Product prescribing error [Unknown]
